FAERS Safety Report 9332640 (Version 3)
Quarter: 2014Q1

REPORT INFORMATION
  Report Type: Report from Study
  Country: NL (occurrence: NL)
  Receive Date: 20130606
  Receipt Date: 20140305
  Transmission Date: 20141002
  Serious: Yes (Other)
  Sender: FDA-Public Use
  Company Number: NL-CELGENEUS-114-21880-13054127

PATIENT
  Age: 51 Year
  Sex: Male
  Weight: 107 kg

DRUGS (12)
  1. REVLIMID [Suspect]
     Indication: PLASMA CELL MYELOMA
     Dosage: 10 MILLIGRAM
     Route: 048
     Dates: start: 20110810, end: 20111026
  2. REVLIMID [Suspect]
     Dosage: 10 MILLIGRAM
     Route: 048
     Dates: start: 20120123
  3. PREDNISON [Suspect]
     Indication: PLASMA CELL MYELOMA
     Dosage: TOTAL MONTHLY DOSE
     Route: 048
     Dates: start: 20110810
  4. PREDNISON [Suspect]
     Dosage: 200 MILLIGRAM
     Route: 048
     Dates: start: 20110810, end: 20111008
  5. MELPHALAN [Suspect]
     Indication: PLASMA CELL MYELOMA
     Dosage: 18 MILLIGRAM
     Route: 048
     Dates: start: 20110810
  6. MELPHALAN [Suspect]
     Dosage: 16 MILLIGRAM
     Route: 048
     Dates: start: 20110816, end: 20111008
  7. THALIDOMIDE [Suspect]
     Indication: PLASMA CELL MYELOMA
     Route: 048
     Dates: start: 200906, end: 200907
  8. ASCAL [Concomitant]
     Indication: THROMBOSIS PROPHYLAXIS
     Dosage: 100 MILLIGRAM
     Route: 065
  9. OMEPRAZOLE [Concomitant]
     Indication: PRODUCT USED FOR UNKNOWN INDICATION
     Dosage: 20 MILLIGRAM
     Route: 065
  10. PARACETAMOL [Concomitant]
     Indication: PRODUCT USED FOR UNKNOWN INDICATION
     Route: 065
  11. DICLOFENAC [Concomitant]
     Indication: PRODUCT USED FOR UNKNOWN INDICATION
     Route: 065
  12. OXYNORM [Concomitant]
     Indication: PRODUCT USED FOR UNKNOWN INDICATION
     Route: 065

REACTIONS (1)
  - Myelodysplastic syndrome [Not Recovered/Not Resolved]
